FAERS Safety Report 10035700 (Version 1)
Quarter: 2014Q1

REPORT INFORMATION
  Report Type: Spontaneous
  Country: US (occurrence: US)
  Receive Date: 20140325
  Receipt Date: 20140325
  Transmission Date: 20141002
  Serious: Yes (Other)
  Sender: FDA-Public Use
  Company Number: US-GLAXOSMITHKLINE-A1065619A

PATIENT
  Age: 67 Year
  Sex: Female

DRUGS (8)
  1. VENTOLIN [Suspect]
     Indication: CHRONIC OBSTRUCTIVE PULMONARY DISEASE
     Dosage: 2PUFF FOUR TIMES PER DAY
     Route: 055
  2. ATROVENT [Concomitant]
  3. SYMBICORT [Concomitant]
  4. NEBULIZER [Concomitant]
  5. THYROID MEDICATION [Concomitant]
  6. BLOOD PRESSURE MEDICATION [Concomitant]
  7. ESCITALOPRAM [Concomitant]
  8. ALPRAZOLAM [Concomitant]

REACTIONS (4)
  - Choking [Recovered/Resolved]
  - Cough [Recovered/Resolved]
  - Dysphagia [Recovered/Resolved]
  - Dyspnoea [Recovered/Resolved]
